FAERS Safety Report 13602034 (Version 3)
Quarter: 2017Q3

REPORT INFORMATION
  Report Type: Spontaneous
  Country: JP (occurrence: JP)
  Receive Date: 20170601
  Receipt Date: 20170803
  Transmission Date: 20171127
  Serious: Yes (Life-Threatening, Hospitalization, Other)
  Sender: FDA-Public Use
  Company Number: JP-PFIZER INC-2017238328

PATIENT
  Age: 54 Year
  Sex: Female

DRUGS (18)
  1. CELECOX [Suspect]
     Active Substance: CELECOXIB
     Indication: RHEUMATOID ARTHRITIS
     Dosage: 200 MG, 2X/DAY
     Route: 048
     Dates: start: 20140205
  2. REUMATREX [Suspect]
     Active Substance: METHOTREXATE
     Dosage: 12 MG, WEEKLY (6 MG ON FRIDAY, 6 MG ON SATURDAY)
     Route: 048
     Dates: start: 20141009, end: 20141204
  3. URSO [Concomitant]
     Active Substance: URSODIOL
     Indication: HEPATIC FUNCTION ABNORMAL
     Dosage: 100 MG, 3X/DAY
     Route: 048
     Dates: start: 20141009
  4. REUMATREX [Suspect]
     Active Substance: METHOTREXATE
     Dosage: 12 MG, WEEKLY (8 MG ON FRIDAY, 4 MG ON SATURDAY)
     Route: 048
     Dates: start: 20150423, end: 20151217
  5. REUMATREX [Suspect]
     Active Substance: METHOTREXATE
     Indication: RHEUMATOID ARTHRITIS
     Dosage: 6 MG, WEEKLY
     Route: 048
     Dates: start: 20140213, end: 20140227
  6. REUMATREX [Suspect]
     Active Substance: METHOTREXATE
     Dosage: 14 MG, WEEKLY (8 MG ON FRIDAY, 6 MG ON SATURDAY)
     Route: 048
     Dates: start: 20140424, end: 20141009
  7. REUMATREX [Suspect]
     Active Substance: METHOTREXATE
     Dosage: 10 MG, WEEKLY (6 MG ON FRIDAY, 4 MG ON SATURDAY)
     Route: 048
     Dates: start: 20141204, end: 20150423
  8. MUCOSTA [Concomitant]
     Active Substance: REBAMIPIDE
     Indication: GASTRITIS
     Dosage: 100 MG, 2X/DAY
     Route: 048
     Dates: start: 20140206
  9. REUMATREX [Suspect]
     Active Substance: METHOTREXATE
     Dosage: 12 MG, WEEKLY (8 MG ON FRIDAY, 4 MG ON SATURDAY)
     Route: 048
     Dates: start: 20140327, end: 20140424
  10. PREDONINE [Suspect]
     Active Substance: PREDNISOLONE
     Indication: RHEUMATOID ARTHRITIS
     Dosage: 5 MG, 1X/DAY
     Route: 048
     Dates: start: 20140206
  11. FOLIAMIN [Concomitant]
     Active Substance: FOLIC ACID
     Indication: RHEUMATOID ARTHRITIS
     Dosage: 5 MG, EVERY SUNDAY
     Route: 048
     Dates: start: 20140213
  12. SUMILU [Concomitant]
     Active Substance: FELBINAC
     Indication: OSTEOARTHRITIS
  13. VOLTAREN [Concomitant]
     Active Substance: DICLOFENAC SODIUM
     Dosage: 2 SUPPOSITORIES, UNKNOWN FREQ.
     Route: 065
     Dates: start: 20140205, end: 20140205
  14. SUMILU [Concomitant]
     Active Substance: FELBINAC
     Indication: OSTEOARTHRITIS
     Dosage: 1 BOTTLE, UNKNOWN FREQ.
     Route: 065
     Dates: start: 20150924
  15. PROGRAF [Suspect]
     Active Substance: TACROLIMUS\TACROLIMUS ANHYDROUS
     Indication: RHEUMATOID ARTHRITIS
     Dosage: 1 MG, 1X/DAY
     Route: 048
     Dates: start: 20140814
  16. REUMATREX [Suspect]
     Active Substance: METHOTREXATE
     Dosage: 8 MG, WEEKLY  (6 MG ON FRIDAY, 2 MG ON SATURDAY)
     Route: 048
     Dates: start: 20140227, end: 20140327
  17. GASTER [Concomitant]
     Active Substance: FAMOTIDINE
     Indication: GASTRITIS
     Dosage: 20 MG, 2X/DAY
     Route: 048
     Dates: start: 20140205, end: 20140205
  18. SUMILU [Concomitant]
     Active Substance: FELBINAC
     Indication: OSTEOARTHRITIS

REACTIONS (6)
  - Weight increased [Unknown]
  - Intentional underdose [Unknown]
  - Loss of consciousness [Recovered/Resolved]
  - Interstitial lung disease [Unknown]
  - Respiratory failure [Unknown]
  - Hepatic function abnormal [Recovered/Resolved]

NARRATIVE: CASE EVENT DATE: 20140814
